FAERS Safety Report 24822149 (Version 3)
Quarter: 2025Q3

REPORT INFORMATION
  Report Type: Spontaneous
  Country: EU (occurrence: EU)
  Receive Date: 20250108
  Receipt Date: 20250802
  Transmission Date: 20251021
  Serious: Yes (Death, Other)
  Sender: ALEXION PHARMACEUTICALS
  Company Number: EU-ASTRAZENECA-202410EEA030926FI

PATIENT
  Sex: Male
  Weight: 60 kg

DRUGS (19)
  1. SOLIRIS [Suspect]
     Active Substance: ECULIZUMAB
     Indication: Autoimmune haemolytic anaemia
  2. SOLIRIS [Suspect]
     Active Substance: ECULIZUMAB
     Indication: Haemolysis
  3. SOLIRIS [Suspect]
     Active Substance: ECULIZUMAB
     Indication: Intravascular haemolysis
  4. SOLIRIS [Suspect]
     Active Substance: ECULIZUMAB
     Indication: Acute kidney injury
  5. SOLIRIS [Suspect]
     Active Substance: ECULIZUMAB
     Indication: Coronary artery disease
  6. CALCIUM CARBONATE\CHOLECALCIFEROL [Concomitant]
     Active Substance: CALCIUM CARBONATE\CHOLECALCIFEROL
     Dosage: 500 MILLIGRAM AND 20 MICROGRAM
     Route: 065
  7. ENALAPRIL MALEATE [Concomitant]
     Active Substance: ENALAPRIL MALEATE
     Dosage: 5 MILLIGRAM, QD
     Route: 065
  8. ATORVASTATIN [Concomitant]
     Active Substance: ATORVASTATIN
     Dosage: 20 MILLIGRAM, QD
     Route: 065
  9. BETAMETHASONE VALERATE [Concomitant]
     Active Substance: BETAMETHASONE VALERATE
     Route: 065
  10. Solifenacin krka [Concomitant]
     Dosage: 10 MILLIGRAM, QD
     Route: 065
  11. VESICARE [Concomitant]
     Active Substance: SOLIFENACIN SUCCINATE
     Dosage: 5 MILLIGRAM, QD
     Route: 065
  12. MIRABEGRON [Concomitant]
     Active Substance: MIRABEGRON
     Dosage: 50 MILLIGRAM, QD
     Route: 065
  13. SIMBRINZA [Concomitant]
     Active Substance: BRIMONIDINE TARTRATE\BRINZOLAMIDE
     Route: 065
  14. TAFLUPROST\TIMOLOL [Concomitant]
     Active Substance: TAFLUPROST\TIMOLOL
     Route: 065
  15. SOLU-MEDROL [Concomitant]
     Active Substance: METHYLPREDNISOLONE SODIUM SUCCINATE
     Dosage: 40 MILLIGRAM, QD
  16. Immunoglobulin [Concomitant]
     Dosage: 25 GRAM, QD
     Dates: start: 20241010
  17. RITUXIMAB [Concomitant]
     Active Substance: RITUXIMAB
  18. PENICILLIN G [Concomitant]
     Active Substance: PENICILLIN G
     Indication: Infection prophylaxis
     Route: 065
  19. CEFUROXIME [Concomitant]
     Active Substance: CEFUROXIME

REACTIONS (3)
  - Autoimmune haemolytic anaemia [Fatal]
  - Multiple organ dysfunction syndrome [Unknown]
  - Circulatory collapse [Unknown]
